FAERS Safety Report 6504208-0 (Version None)
Quarter: 2009Q4

REPORT INFORMATION
  Report Type: 
  Country: None (occurrence: None)
  Receive Date: 20091217
  Receipt Date: 20091215
  Transmission Date: 20100525
  Serious: Yes (Other)
  Sender: FDA-Public Use
  Company Number: DE-WYE-G05148809

PATIENT
  Age: 73 Year
  Sex: Female

DRUGS (2)
  1. VENLAFAXINE HCL [Suspect]
     Indication: DEPRESSION
     Route: 048
  2. LYRICA [Interacting]
     Indication: DEPRESSION
     Route: 048

REACTIONS (3)
  - DRUG INTERACTION [None]
  - FALL [None]
  - FATIGUE [None]
